FAERS Safety Report 17641064 (Version 5)
Quarter: 2020Q4

REPORT INFORMATION
  Report Type: Report from Study
  Country: US (occurrence: US)
  Receive Date: 20200408
  Receipt Date: 20201113
  Transmission Date: 20210113
  Serious: Yes (Life-Threatening, Hospitalization)
  Sender: FDA-Public Use
  Company Number: US-SA-2020SA085620

PATIENT

DRUGS (22)
  1. HEPARIN [Concomitant]
     Active Substance: HEPARIN SODIUM
     Dosage: 5000 U, Q8H
     Route: 042
     Dates: start: 20200316, end: 20200407
  2. HEPARIN [Concomitant]
     Active Substance: HEPARIN SODIUM
     Indication: DEEP VEIN THROMBOSIS
  3. FENTANYL. [Concomitant]
     Active Substance: FENTANYL
     Indication: SEDATION
     Dosage: 2500 UG;
     Route: 042
     Dates: start: 20200319, end: 20200331
  4. ASCORBIC ACID. [Concomitant]
     Active Substance: ASCORBIC ACID
     Indication: COVID-19
     Dosage: 2000 MG
     Route: 042
     Dates: start: 20200319, end: 20200322
  5. ASPIRIN [ACETYLSALICYLIC ACID] [Concomitant]
     Active Substance: ASPIRIN
     Indication: CORONARY ARTERY DISEASE
     Dosage: 81 MG, QD
     Route: 048
     Dates: start: 20200316
  6. CHOLECALCIFEROL [Concomitant]
     Active Substance: CHOLECALCIFEROL
     Indication: COVID-19
     Dosage: 2000 UNITS, QD
     Route: 048
     Dates: start: 20200326, end: 20200430
  7. FAMOTIDINE. [Concomitant]
     Active Substance: FAMOTIDINE
     Indication: COVID-19
     Dosage: 20 MG, BID
     Route: 048
     Dates: start: 20200320, end: 20200404
  8. TICAGRELOR. [Concomitant]
     Active Substance: TICAGRELOR
     Indication: CORONARY ARTERY DISEASE
     Dosage: 90 MG, BID
     Route: 048
     Dates: start: 20200316, end: 20200409
  9. POTASSIUM PHOSPHATE [POTASSIUM PHOSPHATE DIBASIC] [Concomitant]
     Indication: COVID-19
     Dosage: UNK UNK, QD, 15 MMOL/ML
     Route: 042
     Dates: start: 20200326, end: 20200326
  10. FUROSEMIDE. [Concomitant]
     Active Substance: FUROSEMIDE
     Indication: CARDIAC FAILURE CONGESTIVE
  11. PROPOFOL. [Concomitant]
     Active Substance: PROPOFOL
     Indication: SEDATION
     Dosage: 1000 MG;
     Route: 042
     Dates: start: 20200319, end: 20200325
  12. ACETAMINOPHEN. [Concomitant]
     Active Substance: ACETAMINOPHEN
     Indication: PYREXIA
     Dosage: 650 MG, PRN
     Route: 048
     Dates: start: 20200321, end: 20200430
  13. MAGNESIUM SULFAT [Concomitant]
     Active Substance: MAGNESIUM SULFATE
     Indication: COVID-19
     Dosage: 2 G;
     Route: 042
     Dates: start: 20200322, end: 20200322
  14. AZITHROMYCIN ANHYDROUS. [Concomitant]
     Active Substance: AZITHROMYCIN ANHYDROUS
     Indication: ANTIBIOTIC THERAPY
     Dosage: 500 MG; COMPLETE 5 DOSES
     Route: 048
     Dates: start: 20200320, end: 20200323
  15. THIAMINE. [Concomitant]
     Active Substance: THIAMINE
     Indication: COVID-19
     Dosage: 200 MG;
     Route: 042
     Dates: start: 20200319, end: 20200323
  16. LABETALOL [Concomitant]
     Active Substance: LABETALOL\LABETALOL HYDROCHLORIDE
     Indication: HYPERTENSION
     Dosage: 100 MG, TID
     Route: 048
     Dates: start: 20200329, end: 20200413
  17. ACETAMINOPHEN. [Concomitant]
     Active Substance: ACETAMINOPHEN
     Indication: PAIN
     Dosage: 325 MG, Q6H
     Route: 048
  18. FUROSEMIDE. [Concomitant]
     Active Substance: FUROSEMIDE
     Indication: CARDIAC FAILURE CONGESTIVE
     Dosage: 40 MG, ONCE 1X
     Route: 042
     Dates: start: 20200322, end: 20200407
  19. SARILUMAB [Suspect]
     Active Substance: SARILUMAB
     Indication: COVID-19
     Dosage: 200 MG, 1X
     Route: 042
     Dates: start: 20200321, end: 20200321
  20. HYDROXYCHLOROQUINE [Concomitant]
     Active Substance: HYDROXYCHLOROQUINE
     Indication: COVID-19
     Dosage: 200 MG, TID
     Route: 048
     Dates: start: 20200319, end: 20200323
  21. MIDAZOLAM. [Concomitant]
     Active Substance: MIDAZOLAM
     Indication: SEDATION
     Dosage: 100 MG; CONTINOUS INFUSION
     Route: 042
     Dates: start: 20200324, end: 20200326
  22. LEVOPHED [Concomitant]
     Active Substance: NOREPINEPHRINE BITARTRATE
     Indication: BLOOD PRESSURE MANAGEMENT
     Dosage: 16 MG;
     Route: 042
     Dates: start: 20200319, end: 20200322

REACTIONS (2)
  - Respiratory failure [Not Recovered/Not Resolved]
  - Transaminases increased [Recovered/Resolved]

NARRATIVE: CASE EVENT DATE: 20200324
